FAERS Safety Report 8390055-4 (Version None)
Quarter: 2012Q2

REPORT INFORMATION
  Report Type: 
  Country: None (occurrence: None)
  Receive Date: 20120529
  Receipt Date: 20120511
  Transmission Date: 20120825
  Serious: Yes (Hospitalization)
  Sender: FDA-Public Use
  Company Number: AU-SANOFI-AVENTIS-2012SA034416

PATIENT
  Age: 72 Year
  Sex: Female

DRUGS (9)
  1. ALL OTHER THERAPEUTIC PRODUCTS [Concomitant]
  2. DIAZEPAM [Concomitant]
  3. LASIX [Concomitant]
  4. ATACAND [Concomitant]
  5. LANTUS [Suspect]
     Route: 065
  6. LANTUS [Suspect]
     Route: 065
  7. DURAGESIC-100 [Concomitant]
  8. IMDUR [Concomitant]
  9. OMEPRAZOLE (PRISOLEC) [Concomitant]

REACTIONS (4)
  - ABDOMINAL DISCOMFORT [None]
  - DIARRHOEA [None]
  - ABDOMINAL PAIN [None]
  - ADVERSE EVENT [None]
